FAERS Safety Report 25677844 (Version 2)
Quarter: 2025Q3

REPORT INFORMATION
  Report Type: Spontaneous
  Country: CN (occurrence: CN)
  Receive Date: 20250813
  Receipt Date: 20250821
  Transmission Date: 20251021
  Serious: Yes (Other)
  Sender: VERITY PHARMACEUTICALS INC.
  Company Number: CN-VER-202500027

PATIENT
  Age: 37 Year
  Sex: Female

DRUGS (4)
  1. TRIPTORELIN [Suspect]
     Active Substance: TRIPTORELIN
     Indication: Ovulation induction
     Route: 058
  2. CHORIONIC GONADOTROPIN [Concomitant]
     Active Substance: CHORIOGONADOTROPIN ALFA
     Indication: Product used for unknown indication
     Route: 030
  3. FOLLITROPIN [Concomitant]
     Active Substance: FOLLITROPIN
     Indication: Product used for unknown indication
     Dosage: BETA NEEDLE
     Route: 065
  4. UNSPECIFIED INGREDIENT [Concomitant]
     Active Substance: UNSPECIFIED INGREDIENT
     Route: 065

REACTIONS (17)
  - Effusion [Recovered/Resolved]
  - Abdominal distension [Recovered/Resolved]
  - Drainage [Recovered/Resolved]
  - Vision blurred [Recovered/Resolved]
  - Human chorionic gonadotropin increased [Recovered/Resolved]
  - Blood luteinising hormone increased [Recovering/Resolving]
  - Progesterone increased [Recovered/Resolved]
  - Blood oestrogen increased [Recovered/Resolved]
  - Gingival bleeding [Recovered/Resolved]
  - Deep vein thrombosis [Recovered/Resolved]
  - Lower limb fracture [Recovered/Resolved]
  - Thrombosis [Recovered/Resolved]
  - Off label use [Unknown]
  - Pain in extremity [Recovered/Resolved]
  - Injection site bruising [Recovered/Resolved]
  - Peripheral swelling [Recovered/Resolved]
  - Vaginal haemorrhage [Recovered/Resolved]
